FAERS Safety Report 9851289 (Version 2)
Quarter: 2014Q1

REPORT INFORMATION
  Report Type: Spontaneous
  Country: FR (occurrence: FR)
  Receive Date: 20140128
  Receipt Date: 20140201
  Transmission Date: 20141002
  Serious: Yes (Death)
  Sender: FDA-Public Use
  Company Number: FR-ROCHE-1340852

PATIENT
  Age: 88 Year
  Sex: Female
  Weight: 90 kg

DRUGS (5)
  1. ACTILYSE [Suspect]
     Indication: PRODUCT USED FOR UNKNOWN INDICATION
     Route: 042
     Dates: start: 20130822, end: 20130822
  2. ATHYMIL [Concomitant]
  3. LOVENOX [Concomitant]
     Indication: PRODUCT USED FOR UNKNOWN INDICATION
     Route: 065
     Dates: start: 20130823, end: 20130826
  4. RISPERDAL [Concomitant]
  5. ARICEPT [Concomitant]

REACTIONS (1)
  - Haemorrhagic transformation stroke [Fatal]
